FAERS Safety Report 10380673 (Version 1)
Quarter: 2014Q1

REPORT INFORMATION
  Report Type: Spontaneous
  Country: US (occurrence: None)
  Receive Date: 20140306
  Receipt Date: 20140306
  Transmission Date: 20141002
  Serious: Yes (Other)
  Sender: FDA-Public Use
  Company Number: 163-21880-13093390

PATIENT
  Age: 79 Year
  Sex: Female

DRUGS (19)
  1. REVLIMID (LENALIDOMIDE) (10 MILLIGRAM, CAPSULES) [Suspect]
     Indication: PLASMA CELL MYELOMA
     Route: 048
     Dates: start: 200909
  2. COZAAR (LOSARTAN POTASSIUM) [Concomitant]
  3. DESFERAL (DEFEROXAMINE MESILATE) [Concomitant]
  4. ATENOLOL (ATENOLOL) [Concomitant]
  5. LOVASTATIN (LOVASTATIN) [Concomitant]
  6. OMEPRAZOLE (OMEPRAZOLE) [Concomitant]
  7. AMIODARONE (HCL (AMIODARONE HYDROCHLORIDE) [Concomitant]
  8. CETIRIZINE HCL (CETIRIZINE HYDROCHLORIDE) [Concomitant]
  9. MECLIZINE HCL (MECLOZINE HYDROCHLORIDE) [Concomitant]
  10. VERAPAMIL (VERAPAMIL) [Concomitant]
  11. VITAMIN B COMPLEX (B-KOMPLEX ^LECIVA^) [Concomitant]
  12. NYTROGLYCERIN (GLYCERYL TRINITRATE) [Concomitant]
  13. 8 HOUR C (ASCORBIC ACID) [Concomitant]
  14. PRESERVISION AREDS (VITEYES) [Concomitant]
  15. VITAMIN B12 (CYANOCOBALAMIN) [Concomitant]
  16. CALCIUM CIGTRATE WITH VITAMIN D (CALCIUM CITRATE W/COLECALCIFEROL) [Concomitant]
  17. TYLENOL EXTRA STRENGTH (PARACETAMOL) [Concomitant]
  18. EPOGEN (EPOETIN ALFA) [Concomitant]
  19. WOMENS DAILY MULTIVITAMINS (WOMEN^S MULTI) [Concomitant]

REACTIONS (2)
  - Blood test abnormal [None]
  - White blood cell count decreased [None]
